FAERS Safety Report 10895813 (Version 1)
Quarter: 2015Q1

REPORT INFORMATION
  Report Type: Spontaneous
  Country: US (occurrence: US)
  Receive Date: 20150307
  Receipt Date: 20150307
  Transmission Date: 20150721
  Serious: Yes (Other)
  Sender: FDA-Public Use
  Company Number: US-BIOGENIDEC-2015BI018989

PATIENT
  Age: 54 Year
  Sex: Female

DRUGS (1)
  1. TECFIDERA [Suspect]
     Active Substance: DIMETHYL FUMARATE
     Indication: MULTIPLE SCLEROSIS
     Route: 048
     Dates: start: 20141110, end: 20141210

REACTIONS (8)
  - Hernia repair [Recovered/Resolved]
  - Gait disturbance [Not Recovered/Not Resolved]
  - Muscular weakness [Not Recovered/Not Resolved]
  - Hot flush [Not Recovered/Not Resolved]
  - Fatigue [Unknown]
  - Influenza [Unknown]
  - Asthenia [Not Recovered/Not Resolved]
  - General symptom [Unknown]

NARRATIVE: CASE EVENT DATE: 20141210
